FAERS Safety Report 16701414 (Version 1)
Quarter: 2019Q3

REPORT INFORMATION
  Report Type: Spontaneous
  Country: US (occurrence: US)
  Receive Date: 20190814
  Receipt Date: 20190814
  Transmission Date: 20191004
  Serious: Yes (Other)
  Sender: FDA-Public Use
  Company Number: US-ACCORD-150061

PATIENT
  Age: 68 Year
  Sex: Male

DRUGS (4)
  1. CETUXIMAB. [Suspect]
     Active Substance: CETUXIMAB
     Indication: SQUAMOUS CELL CARCINOMA
     Dosage: 400 MG/M2 INITIAL DOSE,?250 MG/M2 SUBSEQUENT DOSES WEEKLY
  2. METOPROLOL. [Concomitant]
     Active Substance: METOPROLOL
  3. DOCETAXEL. [Suspect]
     Active Substance: DOCETAXEL
     Indication: SQUAMOUS CELL CARCINOMA
     Dosage: WEEKLY DOSES
  4. ACETYLSALICYLIC ACID [Concomitant]
     Active Substance: ASPIRIN

REACTIONS (4)
  - Lacrimation increased [Recovered/Resolved]
  - Conjunctival hyperaemia [Unknown]
  - Dermatitis [Recovered/Resolved]
  - Periorbital disorder [Recovered/Resolved]
